FAERS Safety Report 15601451 (Version 1)
Quarter: 2018Q4

REPORT INFORMATION
  Report Type: Report from Study
  Country: DK (occurrence: DK)
  Receive Date: 20181109
  Receipt Date: 20181109
  Transmission Date: 20190205
  Serious: Yes (Death)
  Sender: FDA-Public Use
  Company Number: DK-PURDUE-GBR-2018-0061557

PATIENT
  Age: 42 Year
  Sex: Male

DRUGS (14)
  1. MORPHINE SULFATE. [Suspect]
     Active Substance: MORPHINE SULFATE
     Dosage: 400 MG, DAILY (INITIAL DOSE)
     Route: 008
     Dates: start: 199110, end: 199110
  2. BUPIVACAINE. [Suspect]
     Active Substance: BUPIVACAINE
     Indication: PAIN MANAGEMENT
     Dosage: UNK (CONTINUOUS INFUSION)
     Route: 008
     Dates: start: 199110, end: 199110
  3. BUPIVACAINE. [Suspect]
     Active Substance: BUPIVACAINE
     Indication: NEURALGIA
  4. MORPHINE SULFATE. [Concomitant]
     Active Substance: MORPHINE SULFATE
     Dosage: UNK
     Dates: start: 199110
  5. MST CONTINUS [Suspect]
     Active Substance: MORPHINE SULFATE
     Indication: ABDOMINAL PAIN UPPER
     Dosage: 30 MG, BID
     Route: 048
  6. MORPHINE SULFATE. [Suspect]
     Active Substance: MORPHINE SULFATE
     Indication: PAIN MANAGEMENT
     Dosage: 200 MG/HR
     Route: 008
  7. MORPHINE SULFATE. [Suspect]
     Active Substance: MORPHINE SULFATE
     Indication: VISCERAL PAIN
     Dosage: 1800 MG, DAILY
     Route: 008
     Dates: start: 199201
  8. BUPIVACAINE. [Suspect]
     Active Substance: BUPIVACAINE
     Indication: VISCERAL PAIN
  9. MORPHINE SULFATE. [Concomitant]
     Active Substance: MORPHINE SULFATE
     Indication: ABDOMINAL PAIN UPPER
     Dosage: 10 MG, PRN (ON DEMAND)
     Dates: start: 199105
  10. MORPHINE SULFATE. [Suspect]
     Active Substance: MORPHINE SULFATE
     Indication: NEURALGIA
     Dosage: 1350 MG, DAILY
     Route: 008
     Dates: start: 199112
  11. PIROXICAM. [Concomitant]
     Active Substance: PIROXICAM
     Indication: ABDOMINAL PAIN UPPER
     Dosage: 20 MG, DAILY
  12. CHLORPROMAZINE. [Concomitant]
     Active Substance: CHLORPROMAZINE
     Dosage: UNK
     Dates: start: 199201
  13. DIAZEPAM. [Concomitant]
     Active Substance: DIAZEPAM
     Dosage: UNK
     Dates: start: 201801
  14. MORPHINE SULFATE. [Concomitant]
     Active Substance: MORPHINE SULFATE
     Dosage: UNK
     Dates: start: 199201

REACTIONS (2)
  - Drug ineffective [Unknown]
  - Death [Fatal]
